FAERS Safety Report 4318749-8 (Version None)
Quarter: 2004Q1

REPORT INFORMATION
  Report Type: 
  Country: None (occurrence: None)
  Receive Date: 20040315
  Receipt Date: 20040305
  Transmission Date: 20041129
  Serious: Yes (Death)
  Sender: FDA-Public Use
  Company Number: 200414908BWH

PATIENT
  Age: 42 Year
  Sex: Male

DRUGS (2)
  1. CIPRO [Suspect]
     Indication: GASTROENTERITIS
  2. COUMADIN [Suspect]
     Indication: CARDIAC DISORDER
     Dosage: ORAL
     Route: 048

REACTIONS (2)
  - HAEMORRHAGE [None]
  - PAIN [None]
